FAERS Safety Report 5724214-3 (Version None)
Quarter: 2008Q2

REPORT INFORMATION
  Report Type: 
  Country: None (occurrence: None)
  Receive Date: 20080430
  Receipt Date: 20080421
  Transmission Date: 20081010
  Serious: Yes (Hospitalization)
  Sender: FDA-Public Use
  Company Number: US-MERCK-0804USA04637

PATIENT
  Age: 63 Year
  Sex: Male
  Weight: 87 kg

DRUGS (7)
  1. DECADRON [Suspect]
     Indication: MULTIPLE MYELOMA
     Route: 048
     Dates: start: 20070101
  2. THALIDOMIDE [Suspect]
     Indication: MULTIPLE MYELOMA
     Route: 048
     Dates: start: 20070111, end: 20070101
  3. THALIDOMIDE [Suspect]
     Route: 048
     Dates: start: 20070130, end: 20070202
  4. ALLOPURINOL [Concomitant]
     Route: 065
  5. AREDIA [Concomitant]
     Route: 065
  6. ASPIRIN [Concomitant]
     Route: 065
  7. ARANESP [Suspect]
     Indication: HAEMOGLOBIN DECREASED
     Route: 058
     Dates: start: 20070207, end: 20070207

REACTIONS (7)
  - BLOOD PRESSURE INCREASED [None]
  - BODY TEMPERATURE INCREASED [None]
  - ENCEPHALOPATHY [None]
  - FLUID RETENTION [None]
  - HEADACHE [None]
  - RASH [None]
  - SWELLING FACE [None]
